FAERS Safety Report 4936527-3 (Version None)
Quarter: 2006Q1

REPORT INFORMATION
  Report Type: 
  Country: None (occurrence: None)
  Receive Date: 20060307
  Receipt Date: 20060215
  Transmission Date: 20060701
  Serious: Yes (Other)
  Sender: FDA-Public Use
  Company Number: US-MERCK-0602USA04355

PATIENT
  Age: 66 Year
  Sex: Female

DRUGS (8)
  1. ZOCOR [Suspect]
     Indication: BLOOD CHOLESTEROL INCREASED
     Route: 048
     Dates: start: 20041001
  2. METOPROLOL [Concomitant]
     Route: 065
  3. NOVOLIN R [Concomitant]
     Route: 065
  4. PRANDIN [Concomitant]
     Route: 065
  5. ACTOS [Concomitant]
     Route: 065
  6. DETROL [Concomitant]
     Route: 065
  7. PLAVIX [Concomitant]
     Route: 065
  8. NORVASC [Concomitant]
     Route: 065

REACTIONS (2)
  - ARRHYTHMIA [None]
  - POLYURIA [None]
